FAERS Safety Report 17438803 (Version 2)
Quarter: 2020Q2

REPORT INFORMATION
  Report Type: Spontaneous
  Country: GB (occurrence: GB)
  Receive Date: 20200220
  Receipt Date: 20200616
  Transmission Date: 20200713
  Serious: Yes (Hospitalization)
  Sender: FDA-Public Use
  Company Number: GB-TEVA-2020-GB-1188132

PATIENT
  Age: 36 Year
  Sex: Female
  Weight: 57.6 kg

DRUGS (3)
  1. PARACETAMOL [Concomitant]
     Active Substance: ACETAMINOPHEN
  2. CLARITHROMYCIN. [Suspect]
     Active Substance: CLARITHROMYCIN
     Indication: OTITIS MEDIA
     Dosage: 2 DOSAGE FORMS
     Route: 048
     Dates: start: 20190929, end: 20191001
  3. IBUPROFEN. [Concomitant]
     Active Substance: IBUPROFEN

REACTIONS (15)
  - Hallucination [Recovered/Resolved]
  - Headache [Recovering/Resolving]
  - Photophobia [Not Recovered/Not Resolved]
  - Eye pain [Not Recovered/Not Resolved]
  - Tremor [Not Recovered/Not Resolved]
  - Dystonia [Not Recovered/Not Resolved]
  - Vestibular disorder [Not Recovered/Not Resolved]
  - Vision blurred [Recovering/Resolving]
  - Sleep terror [Recovered/Resolved]
  - Vertigo [Recovering/Resolving]
  - Ocular discomfort [Recovering/Resolving]
  - Feeling abnormal [Recovering/Resolving]
  - Tinnitus [Not Recovered/Not Resolved]
  - Dizziness [Recovering/Resolving]
  - Dysgeusia [Recovered/Resolved]

NARRATIVE: CASE EVENT DATE: 20190930
